FAERS Safety Report 23331018 (Version 2)
Quarter: 2023Q4

REPORT INFORMATION
  Report Type: Report from Study
  Country: US (occurrence: US)
  Receive Date: 20231222
  Receipt Date: 20231229
  Transmission Date: 20240109
  Serious: Yes (Hospitalization, Other)
  Sender: FDA-Public Use
  Company Number: US-BAYER-2023A104631

PATIENT
  Age: 27 Year
  Sex: Female
  Weight: 64.853 kg

DRUGS (19)
  1. ADEMPAS [Suspect]
     Active Substance: RIOCIGUAT
     Indication: Pulmonary arterial hypertension
     Dosage: 0.5 MG, TID
     Route: 048
     Dates: start: 20230619
  2. ADEMPAS [Suspect]
     Active Substance: RIOCIGUAT
     Indication: Pulmonary arterial hypertension
     Dosage: 0.5 MG, TID
  3. ADEMPAS [Suspect]
     Active Substance: RIOCIGUAT
     Indication: Pulmonary arterial hypertension
     Dosage: 0.5 MG, TID
     Route: 048
     Dates: start: 20231209
  4. AMBRISENTAN [Suspect]
     Active Substance: AMBRISENTAN
     Dosage: 10 MG
  5. AMBRISENTAN [Suspect]
     Active Substance: AMBRISENTAN
     Dosage: 5 MG
  6. XARELTO [Concomitant]
     Active Substance: RIVAROXABAN
  7. SODIUM CHLORIDE [Concomitant]
     Active Substance: SODIUM CHLORIDE
  8. SERTRALINE HYDROCHLORIDE [Concomitant]
     Active Substance: SERTRALINE HYDROCHLORIDE
  9. ACETAMINOPHEN [Concomitant]
     Active Substance: ACETAMINOPHEN
  10. FAMOTIDINE [Concomitant]
     Active Substance: FAMOTIDINE
  11. JANTOVEN [Concomitant]
     Active Substance: WARFARIN SODIUM
  12. OMEPRAZOLE [Concomitant]
     Active Substance: OMEPRAZOLE
  13. BISACODYL [Concomitant]
     Active Substance: BISACODYL
  14. PROCHLORPERAZINE MALEATE [Concomitant]
     Active Substance: PROCHLORPERAZINE MALEATE
  15. OXYGEN [Concomitant]
     Active Substance: OXYGEN
  16. ENOXAPARIN SODIUM [Concomitant]
     Active Substance: ENOXAPARIN SODIUM
  17. FUROSEMIDE [Concomitant]
     Active Substance: FUROSEMIDE
  18. POLYETHYLENE GLYCOLS [Concomitant]
     Active Substance: POLYETHYLENE GLYCOLS
  19. LOPERAMIDE [Concomitant]
     Active Substance: LOPERAMIDE

REACTIONS (9)
  - Chest pain [None]
  - Exposure during pregnancy [None]
  - Haematemesis [None]
  - Abortion spontaneous [None]
  - Pulmonary thrombosis [None]
  - Chest pain [Recovered/Resolved]
  - Dyspnoea [None]
  - Muscle spasms [None]
  - Hormone level abnormal [None]

NARRATIVE: CASE EVENT DATE: 20230601
